FAERS Safety Report 20578536 (Version 1)
Quarter: 2022Q1

REPORT INFORMATION
  Report Type: Spontaneous
  Country: US (occurrence: US)
  Receive Date: 20220310
  Receipt Date: 20220310
  Transmission Date: 20220423
  Serious: No
  Sender: FDA-Public Use
  Company Number: US-TERSERA THERAPEUTICS LLC-2021TRS003976

PATIENT

DRUGS (1)
  1. XERMELO [Suspect]
     Active Substance: TELOTRISTAT ETHYL
     Indication: Neuroendocrine carcinoma
     Dosage: 250 MG, BID (1 TABLET 2 TIMES DAILY)
     Route: 048
     Dates: start: 20210802

REACTIONS (2)
  - Feeling abnormal [Unknown]
  - Ill-defined disorder [Unknown]
